FAERS Safety Report 8851911 (Version 1)
Quarter: 2012Q4

REPORT INFORMATION
  Report Type: 
  Country: US (occurrence: US)
  Receive Date: 20121022
  Receipt Date: 20121022
  Transmission Date: 20130627
  Serious: Yes (Other)
  Sender: FDA-Public Use
  Company Number: US-SANOFI-AVENTIS-2012SA074803

PATIENT
  Sex: Male

DRUGS (2)
  1. LANTUS [Suspect]
     Dosage: 5 units in am and 15 units at night
     Route: 058
  2. GLIPIZIDE [Concomitant]

REACTIONS (2)
  - Pneumonia [Unknown]
  - Blood glucose increased [Recovered/Resolved]
